FAERS Safety Report 6712988-4 (Version None)
Quarter: 2010Q2

REPORT INFORMATION
  Report Type: 
  Country: None (occurrence: None)
  Receive Date: 20100505
  Receipt Date: 20100505
  Transmission Date: 20101027
  Serious: Yes (Hospitalization, Disabling)
  Sender: FDA-Public Use
  Company Number: None

PATIENT
  Age: 63 Year
  Sex: Female
  Weight: 74.8435 kg

DRUGS (2)
  1. LIPITOR [Suspect]
     Indication: BLOOD CHOLESTEROL INCREASED
     Dosage: LIPITOR 10 MG 1/DAY PO  1/ DAY
     Route: 048
     Dates: start: 20040601, end: 20060201
  2. SIMVASTATIN [Suspect]
     Indication: BLOOD CHOLESTEROL INCREASED
     Dosage: 40 MG  1/ DAY
     Route: 048
     Dates: start: 20090901, end: 20100208

REACTIONS (4)
  - ABDOMINAL DISCOMFORT [None]
  - MUSCULAR WEAKNESS [None]
  - TENDON DISORDER [None]
  - TENDONITIS [None]
